FAERS Safety Report 17466415 (Version 2)
Quarter: 2020Q1

REPORT INFORMATION
  Report Type: Report from Study
  Country: DZ (occurrence: DZ)
  Receive Date: 20200227
  Receipt Date: 20200304
  Transmission Date: 20200409
  Serious: Yes (Congenital Anomaly, Other)
  Sender: FDA-Public Use
  Company Number: DZ-NOVOPROD-713960

PATIENT

DRUGS (2)
  1. LEVEMIR [Suspect]
     Active Substance: INSULIN DETEMIR
     Indication: GESTATIONAL DIABETES
     Dosage: UNK
     Route: 064
     Dates: end: 20190325
  2. NOVORAPID [Suspect]
     Active Substance: INSULIN ASPART
     Indication: GESTATIONAL DIABETES
     Dosage: 20 IU, TID
     Route: 064
     Dates: end: 20190325

REACTIONS (2)
  - Foetal exposure during pregnancy [Recovered/Resolved]
  - Ventricular septal defect [Unknown]
